FAERS Safety Report 4792766-6 (Version None)
Quarter: 2005Q4

REPORT INFORMATION
  Report Type: 
  Country: None (occurrence: None)
  Receive Date: 20051010
  Receipt Date: 20050928
  Transmission Date: 20060501
  Serious: Yes (Other)
  Sender: FDA-Public Use
  Company Number: US-MERCK-0509USA04959

PATIENT
  Age: 57 Year
  Sex: Male

DRUGS (1)
  1. VIOXX [Suspect]
     Route: 048
     Dates: start: 20001101, end: 20040701

REACTIONS (7)
  - ANGINA PECTORIS [None]
  - ARTERIAL RESTENOSIS [None]
  - CONDITION AGGRAVATED [None]
  - DYSPNOEA [None]
  - HYPERHIDROSIS [None]
  - INTERMITTENT CLAUDICATION [None]
  - LERICHE SYNDROME [None]
